FAERS Safety Report 5676356-9 (Version None)
Quarter: 2008Q1

REPORT INFORMATION
  Report Type: 
  Country: None (occurrence: None)
  Receive Date: 20080321
  Receipt Date: 20080311
  Transmission Date: 20080703
  Serious: Yes (Other)
  Sender: FDA-Public Use
  Company Number: GB-PFIZER INC-2008022833

PATIENT
  Age: 63 Year
  Sex: Male
  Weight: 85.7 kg

DRUGS (5)
  1. CHAMPIX [Suspect]
     Indication: SMOKING CESSATION THERAPY
     Route: 048
  2. IBUPROFEN [Concomitant]
     Indication: BACK PAIN
     Route: 048
  3. NASONEX [Concomitant]
  4. ALL OTHER THERAPEUTIC PRODUCTS [Concomitant]
  5. TELFAST [Concomitant]

REACTIONS (2)
  - FLATULENCE [None]
  - OESOPHAGEAL PAIN [None]
